FAERS Safety Report 10580943 (Version 1)
Quarter: 2014Q4

REPORT INFORMATION
  Report Type: Spontaneous
  Country: US (occurrence: None)
  Receive Date: 20141112
  Receipt Date: 20141112
  Transmission Date: 20150529
  Serious: Yes (Other)
  Sender: FDA-Public Use
  Company Number: None

PATIENT
  Age: 65 Year
  Sex: Male
  Weight: 70.31 kg

DRUGS (2)
  1. HYDROCODONE [Suspect]
     Active Substance: HYDROCODONE
     Indication: PROCEDURAL PAIN
     Dosage: 1 EVERY 6 HOURS, AS NEEDED, TAKEN BY MOUTH
     Route: 048
     Dates: start: 20141101, end: 20141111
  2. HYDROCODONE [Suspect]
     Active Substance: HYDROCODONE
     Indication: KNEE ARTHROPLASTY
     Dosage: 1 EVERY 6 HOURS, AS NEEDED, TAKEN BY MOUTH
     Route: 048
     Dates: start: 20141101, end: 20141111

REACTIONS (3)
  - Drug ineffective [None]
  - Product substitution issue [None]
  - Product quality issue [None]

NARRATIVE: CASE EVENT DATE: 20141101
